FAERS Safety Report 16332134 (Version 1)
Quarter: 2019Q2

REPORT INFORMATION
  Report Type: Spontaneous
  Country: US (occurrence: US)
  Receive Date: 20190519
  Receipt Date: 20190519
  Transmission Date: 20190711
  Serious: Yes (Other)
  Sender: FDA-Public Use
  Company Number: None

PATIENT
  Age: 50 Year
  Sex: Female
  Weight: 97.2 kg

DRUGS (13)
  1. FLUTICASONE-SALMETEROL [Concomitant]
  2. PANTOPRAZOLE SOD DR [Concomitant]
     Active Substance: PANTOPRAZOLE SODIUM
  3. OXYCODONE HYDROCHLORIDE. [Concomitant]
     Active Substance: OXYCODONE HYDROCHLORIDE
  4. FLUTICASONE PROPIONATE. [Concomitant]
     Active Substance: FLUTICASONE PROPIONATE
  5. IRBESARTAN-HCTZ [Concomitant]
  6. SERTRALINE HCL [Concomitant]
     Active Substance: SERTRALINE HYDROCHLORIDE
  7. IRON [Concomitant]
     Active Substance: IRON
  8. LOSARTAN POTASSIUM USP 100 MG TAB [Suspect]
     Active Substance: LOSARTAN POTASSIUM
     Indication: HYPERTENSION
     Dosage: ?          QUANTITY:1 TABLET(S);?
     Route: 048
     Dates: start: 20190510, end: 20190513
  9. TRAMADOL. [Concomitant]
     Active Substance: TRAMADOL
  10. METHIMAZOLE. [Concomitant]
     Active Substance: METHIMAZOLE
  11. CETIRIZINE HCL [Concomitant]
     Active Substance: CETIRIZINE HYDROCHLORIDE
  12. GABAPENTIN. [Concomitant]
     Active Substance: GABAPENTIN
  13. ALBUTEROL HFA [Concomitant]
     Active Substance: ALBUTEROL SULFATE

REACTIONS (10)
  - Insurance issue [None]
  - Erythema [None]
  - Product substitution issue [None]
  - Nausea [None]
  - Pruritus [None]
  - Hyperhidrosis [None]
  - Headache [None]
  - Flushing [None]
  - Dizziness [None]
  - Abdominal pain upper [None]

NARRATIVE: CASE EVENT DATE: 20190510
